FAERS Safety Report 4355412-1 (Version None)
Quarter: 2004Q2

REPORT INFORMATION
  Report Type: 
  Country: None (occurrence: None)
  Receive Date: 20040504
  Receipt Date: 20040421
  Transmission Date: 20050107
  Serious: Yes (Other)
  Sender: FDA-Public Use
  Company Number: GB-JNJFOC-20040404628

PATIENT
  Age: 74 Year
  Sex: Male

DRUGS (2)
  1. RETEVASE [Suspect]
     Indication: ELECTROCARDIOGRAM ST SEGMENT ELEVATION
     Dosage: 10 UNITS BOLUS TIMES TWO
     Dates: start: 20040322, end: 20040322
  2. RETEVASE [Suspect]
     Indication: MYOCARDIAL INFARCTION
     Dosage: 10 UNITS BOLUS TIMES TWO
     Dates: start: 20040322, end: 20040322

REACTIONS (1)
  - RASH GENERALISED [None]
